FAERS Safety Report 6504850-7 (Version None)
Quarter: 2009Q4

REPORT INFORMATION
  Report Type: 
  Country: None (occurrence: None)
  Receive Date: 20091216
  Receipt Date: 20091204
  Transmission Date: 20100525
  Serious: Yes (Hospitalization)
  Sender: FDA-Public Use
  Company Number: 2009SP039807

PATIENT
  Age: 44 Year
  Sex: Male

DRUGS (3)
  1. PEG-INTRON [Suspect]
     Indication: HEPATITIS C
     Dosage: 150 MCG;QW;SC
     Route: 058
     Dates: start: 20040101, end: 20060101
  2. INTRON A [Suspect]
     Indication: HEPATITIS C
  3. RIBAVIRIN [Suspect]
     Indication: HEPATITIS C
     Dosage: 1200 MG;QD;PO
     Route: 048
     Dates: start: 20040101, end: 20060101

REACTIONS (50)
  - ACINETOBACTER INFECTION [None]
  - BACTERIAL TEST POSITIVE [None]
  - BLOOD PRESSURE DIASTOLIC DECREASED [None]
  - CARDIOVASCULAR DISORDER [None]
  - CENTRAL NERVOUS SYSTEM LESION [None]
  - CONNECTIVE TISSUE DISORDER [None]
  - DEFORMITY [None]
  - DISSEMINATED INTRAVASCULAR COAGULATION [None]
  - DIZZINESS [None]
  - DRUG INEFFECTIVE [None]
  - ENTEROBACTER INFECTION [None]
  - EPILEPSY [None]
  - ESCHERICHIA INFECTION [None]
  - HAEMATOCRIT DECREASED [None]
  - HAEMODYNAMIC INSTABILITY [None]
  - HAEMOGLOBIN DECREASED [None]
  - HEPATIC STEATOSIS [None]
  - HYPERAEMIA [None]
  - KLEBSIELLA INFECTION [None]
  - LIVER INJURY [None]
  - MOBILITY DECREASED [None]
  - MULTI-ORGAN FAILURE [None]
  - NAIL DYSTROPHY [None]
  - OEDEMA [None]
  - OEDEMA PERIPHERAL [None]
  - ORGAN TRANSPLANT [None]
  - PAIN [None]
  - PETECHIAE [None]
  - PHARYNGEAL DISORDER [None]
  - PNEUMONIA [None]
  - PROTEUS INFECTION [None]
  - PYODERMA GANGRENOSUM [None]
  - RED BLOOD CELL COUNT DECREASED [None]
  - RENAL FAILURE ACUTE [None]
  - RESPIRATORY FAILURE [None]
  - SCAR [None]
  - SEPTIC ENCEPHALOPATHY [None]
  - SEPTIC SHOCK [None]
  - SKIN DISCOLOURATION [None]
  - SKIN EROSION [None]
  - SKIN HAEMORRHAGE [None]
  - SKIN NECROSIS [None]
  - SKIN OEDEMA [None]
  - SOMNOLENCE [None]
  - STAPHYLOCOCCAL INFECTION [None]
  - STREPTOCOCCAL INFECTION [None]
  - TACHYCARDIA [None]
  - TOXIC EPIDERMAL NECROLYSIS [None]
  - WOUND INFECTION BACTERIAL [None]
  - WOUND INFECTION STAPHYLOCOCCAL [None]
